FAERS Safety Report 6736927-5 (Version None)
Quarter: 2010Q2

REPORT INFORMATION
  Report Type: 
  Country: None (occurrence: None)
  Receive Date: 20100521
  Receipt Date: 20100512
  Transmission Date: 20101027
  Serious: Yes (Hospitalization)
  Sender: FDA-Public Use
  Company Number: US-ABBOTT-10P-163-0636234-00

PATIENT
  Sex: Male
  Weight: 117.59 kg

DRUGS (2)
  1. TRILIPIX [Suspect]
     Indication: BLOOD TRIGLYCERIDES INCREASED
     Dates: start: 20100128, end: 20100404
  2. TRILIPIX [Suspect]
     Indication: HYPERLIPIDAEMIA

REACTIONS (2)
  - HYPERTENSION [None]
  - RENAL IMPAIRMENT [None]
